FAERS Safety Report 9188700 (Version 1)
Quarter: 2013Q1

REPORT INFORMATION
  Report Type: Report from Study
  Country: DE (occurrence: DE)
  Receive Date: 20130325
  Receipt Date: 20130325
  Transmission Date: 20140127
  Serious: Yes (Other)
  Sender: FDA-Public Use
  Company Number: DE-ASTELLAS-2013US003187

PATIENT
  Sex: Female
  Weight: 71 kg

DRUGS (3)
  1. ERLOTINIB TABLET [Suspect]
     Indication: NON-SMALL CELL LUNG CANCER
     Dosage: 150 MG, UID/QD
     Route: 048
     Dates: start: 200609, end: 200711
  2. CUXANORM [Concomitant]
     Indication: ARRHYTHMIA
     Dosage: UNK
     Route: 065
  3. DECOSTRIOL [Concomitant]
     Indication: OSTEOPOROSIS
     Dosage: UNK
     Route: 065

REACTIONS (4)
  - Anaemia [Unknown]
  - Malignant neoplasm progression [Unknown]
  - Lacrimation increased [Unknown]
  - Rash [Unknown]
